FAERS Safety Report 9127424 (Version 1)
Quarter: 2013Q1

REPORT INFORMATION
  Report Type: Spontaneous
  Country: US (occurrence: US)
  Receive Date: 20130228
  Receipt Date: 20130228
  Transmission Date: 20140127
  Serious: No
  Sender: FDA-Public Use
  Company Number: US-GLAXOSMITHKLINE-A0974655A

PATIENT
  Sex: Female

DRUGS (2)
  1. LAMICTAL [Suspect]
     Indication: PRODUCT USED FOR UNKNOWN INDICATION
  2. NEURONTIN [Concomitant]

REACTIONS (4)
  - Post herpetic neuralgia [Not Recovered/Not Resolved]
  - Facial pain [Unknown]
  - Hypoaesthesia [Unknown]
  - Facial pain [Unknown]
